FAERS Safety Report 15210458 (Version 2)
Quarter: 2018Q3

REPORT INFORMATION
  Report Type: Report from Study
  Country: US (occurrence: US)
  Receive Date: 20180727
  Receipt Date: 20180808
  Transmission Date: 20181010
  Serious: Yes (Other)
  Sender: FDA-Public Use
  Company Number: US-SEATTLE GENETICS-2018SGN01748

PATIENT
  Age: 17 Year
  Sex: Female
  Weight: 85.2 kg

DRUGS (7)
  1. PREDNISONE. [Suspect]
     Active Substance: PREDNISONE
     Dosage: 40 MG/M2, QCYCLE
     Route: 048
     Dates: end: 20180616
  2. CYCLOPHOSPHAMIDE. [Suspect]
     Active Substance: CYCLOPHOSPHAMIDE
     Indication: HODGKIN^S DISEASE NODULAR SCLEROSIS STAGE IV
     Dosage: 500 MG/M2, QCYCLE
     Route: 042
     Dates: start: 20180403, end: 20180612
  3. BRENTUXIMAB VEDOTIN [Suspect]
     Active Substance: BRENTUXIMAB VEDOTIN
     Indication: HODGKIN^S DISEASE NODULAR SCLEROSIS STAGE IV
     Dosage: 1.2 MG/KG, QCYCLE
     Route: 042
     Dates: start: 20180131, end: 20180612
  4. PREDNISONE. [Suspect]
     Active Substance: PREDNISONE
     Indication: HODGKIN^S DISEASE NODULAR SCLEROSIS STAGE IV
     Dosage: 60 MG/M2, QCYCLE
     Route: 048
     Dates: start: 20180131, end: 20180616
  5. DACARBAZINE. [Suspect]
     Active Substance: DACARBAZINE
     Indication: HODGKIN^S DISEASE NODULAR SCLEROSIS STAGE IV
     Dosage: 250 MG/M2, QCYCLE
     Route: 042
     Dates: start: 20180403, end: 20180605
  6. ETOPOSIDE. [Suspect]
     Active Substance: ETOPOSIDE
     Indication: HODGKIN^S DISEASE NODULAR SCLEROSIS STAGE IV
     Dosage: 125 MG/KG, QCYCLE
     Route: 042
     Dates: start: 20180131, end: 20180306
  7. DOXORUBICIN [Suspect]
     Active Substance: DOXORUBICIN
     Indication: HODGKIN^S DISEASE NODULAR SCLEROSIS STAGE IV
     Dosage: 40 MG/M2, QCYCLE
     Route: 042
     Dates: start: 20180131, end: 20180317

REACTIONS (1)
  - Brachial plexopathy [Not Recovered/Not Resolved]

NARRATIVE: CASE EVENT DATE: 20180625
